FAERS Safety Report 5716306-X (Version None)
Quarter: 2008Q2

REPORT INFORMATION
  Report Type: 
  Country: None (occurrence: None)
  Receive Date: 20080416
  Receipt Date: 20070611
  Transmission Date: 20081010
  Serious: Yes (Hospitalization)
  Sender: FDA-Public Use
  Company Number: 2007-BP-06817BP

PATIENT
  Age: 81 Year
  Sex: Male

DRUGS (6)
  1. FLOMAX [Suspect]
     Indication: BENIGN PROSTATIC HYPERPLASIA
     Dosage: SEE TEXT (0.4 MG,0.4 MG EVERY OTHER DAY (QOD)),PO ; 0.4 MG (0.4MG,1 IN 1 D),PO
     Route: 048
     Dates: start: 20050101, end: 20061201
  2. FLOMAX [Suspect]
     Indication: DYSURIA
     Dosage: SEE TEXT (0.4 MG,0.4 MG EVERY OTHER DAY (QOD)),PO ; 0.4 MG (0.4MG,1 IN 1 D),PO
     Route: 048
     Dates: start: 20050101, end: 20061201
  3. FLOMAX [Suspect]
     Indication: BENIGN PROSTATIC HYPERPLASIA
     Dosage: SEE TEXT (0.4 MG,0.4 MG EVERY OTHER DAY (QOD)),PO ; 0.4 MG (0.4MG,1 IN 1 D),PO
     Route: 048
     Dates: start: 20061201
  4. FLOMAX [Suspect]
     Indication: DYSURIA
     Dosage: SEE TEXT (0.4 MG,0.4 MG EVERY OTHER DAY (QOD)),PO ; 0.4 MG (0.4MG,1 IN 1 D),PO
     Route: 048
     Dates: start: 20061201
  5. INSULIN (INSULIN) [Concomitant]
  6. SYNTHROID [Concomitant]

REACTIONS (3)
  - BLOOD GLUCOSE INCREASED [None]
  - BLOOD PRESSURE DECREASED [None]
  - PROSTATIC SPECIFIC ANTIGEN INCREASED [None]
